FAERS Safety Report 6823088-7 (Version None)
Quarter: 2010Q3

REPORT INFORMATION
  Report Type: 
  Country: None (occurrence: None)
  Receive Date: 20100708
  Receipt Date: 20100623
  Transmission Date: 20110219
  Serious: Yes (Death, Congenital Anomaly, Other)
  Sender: FDA-Public Use
  Company Number: AT-MERCK-1005AUT00004B1

PATIENT
  Age: 16 Day
  Sex: Female

DRUGS (4)
  1. ISENTRESS [Suspect]
     Route: 064
  2. ZIDOVUDINE [Suspect]
     Route: 064
  3. DARUNAVIR [Suspect]
     Route: 064
  4. RITONAVIR [Suspect]
     Route: 064

REACTIONS (7)
  - CARDIAC MURMUR [None]
  - CONGENITAL HEART VALVE DISORDER [None]
  - CONGENITAL PULMONARY VALVE DISORDER [None]
  - MATERNAL DRUGS AFFECTING FOETUS [None]
  - NEONATAL RESPIRATORY ARREST [None]
  - SUDDEN INFANT DEATH SYNDROME [None]
  - VENTRICULAR HYPERTROPHY [None]
